FAERS Safety Report 9983475 (Version 2)
Quarter: 2014Q1

REPORT INFORMATION
  Report Type: Report from Study
  Country: NL (occurrence: NL)
  Receive Date: 20140307
  Receipt Date: 20140326
  Transmission Date: 20141002
  Serious: Yes (Death, Other)
  Sender: FDA-Public Use
  Company Number: PHHY2014NL027892

PATIENT
  Age: 75 Year
  Sex: Female

DRUGS (17)
  1. ACLASTA [Suspect]
     Indication: OSTEOPOROSIS
     Dosage: 5 MG, PER 52 WEEKS
     Route: 042
     Dates: start: 20110324
  2. ACLASTA [Suspect]
     Dosage: 5 MG, PER 52 WEEKS
     Route: 042
     Dates: start: 20120322
  3. ACLASTA [Suspect]
     Dosage: 5 MG, PER 52 WEEKS
     Route: 042
     Dates: start: 201302
  4. ONDANSETRON [Concomitant]
     Dosage: 8 MG, WHEN NEEDED
  5. PRIMPERAN [Concomitant]
     Dosage: WHEN NEEDED
  6. CALCIUM [Concomitant]
     Dosage: 500 MG, 1DD1
  7. VITAMIN D3 [Concomitant]
     Dosage: 5600 IU/WEEK
  8. METFORMIN [Concomitant]
     Dosage: 500 MG, 1DD1
  9. AMLODIPINE [Concomitant]
     Dosage: 5 MG, 1DD1
  10. ATENOLOL [Concomitant]
     Dosage: 1DD1
  11. THYRAX DUOTAB [Concomitant]
     Dosage: 15 MG, 1DD1
  12. SERETIDE [Concomitant]
     Dosage: UNK
     Route: 055
  13. OMEPRAZOLE [Concomitant]
     Dosage: 40 MG, 1DD1
  14. VOLCOLON [Concomitant]
     Dosage: 1DD1
  15. FOLIC ACID [Concomitant]
     Dosage: 0.5 MG, 1DD1
  16. SIMVASTATIN [Concomitant]
     Dosage: 40 MG, 1DD1
  17. OXYCODON [Concomitant]
     Dosage: 5 MG, 1TO 2 PER DAY

REACTIONS (2)
  - Death [Fatal]
  - Terminal state [Unknown]
